FAERS Safety Report 7106269-7 (Version None)
Quarter: 2010Q4

REPORT INFORMATION
  Report Type: 
  Country: None (occurrence: None)
  Receive Date: 20101116
  Receipt Date: 20101110
  Transmission Date: 20110411
  Serious: Yes (Life-Threatening)
  Sender: FDA-Public Use
  Company Number: NO-PFIZER INC-2010144526

PATIENT
  Age: 22 Year
  Sex: Female

DRUGS (3)
  1. VENLAFAXINE HCL [Suspect]
     Indication: DEPRESSION
     Dosage: 75 MG, 2X/DAY
     Route: 048
     Dates: start: 20100902, end: 20100903
  2. YASMIN [Concomitant]
     Indication: CONTRACEPTION
     Route: 048
  3. RIVOTRIL [Concomitant]
     Indication: AGITATION
     Dosage: 1 TABLET AT BEDTIME
     Route: 048
     Dates: start: 20100602

REACTIONS (1)
  - EPILEPSY [None]
